FAERS Safety Report 12120467 (Version 1)
Quarter: 2016Q1

REPORT INFORMATION
  Report Type: Spontaneous
  Country: US (occurrence: US)
  Receive Date: 20160226
  Receipt Date: 20160226
  Transmission Date: 20160526
  Serious: No
  Sender: FDA-Public Use
  Company Number: US-CANGENE-145695

PATIENT
  Age: 47 Year
  Sex: Male

DRUGS (4)
  1. CLINDAMYCIN [Concomitant]
     Active Substance: CLINDAMYCIN\CLINDAMYCIN PHOSPHATE
     Indication: SKIN INFECTION
     Route: 042
     Dates: start: 20160205, end: 20160210
  2. OLANZAPINE. [Concomitant]
     Active Substance: OLANZAPINE
     Indication: AGITATION
     Route: 060
     Dates: start: 20160205, end: 20160209
  3. BAT [Suspect]
     Active Substance: EQUINE BOTULINUM NEUROTOXIN A/B/C/D/E/F/G IMMUNE FAB2
     Indication: BOTULISM
     Route: 042
     Dates: start: 20160205, end: 20160205
  4. PHYTONADIONE. [Concomitant]
     Active Substance: PHYTONADIONE
     Route: 048
     Dates: start: 20160205, end: 20160205

REACTIONS (3)
  - Incorrect drug administration rate [Recovered/Resolved]
  - Product label confusion [None]
  - No adverse event [None]

NARRATIVE: CASE EVENT DATE: 20160205
